FAERS Safety Report 6409036-2 (Version None)
Quarter: 2009Q4

REPORT INFORMATION
  Report Type: 
  Country: None (occurrence: None)
  Receive Date: 20091019
  Receipt Date: 20091007
  Transmission Date: 20100525
  Serious: Yes (Death)
  Sender: FDA-Public Use
  Company Number: 440021M09USA

PATIENT
  Sex: Male

DRUGS (1)
  1. SEROSTIM [Suspect]
     Indication: CACHEXIA
     Dates: end: 20090201

REACTIONS (3)
  - INFECTION [None]
  - RENAL FAILURE [None]
  - TREATMENT NONCOMPLIANCE [None]
